FAERS Safety Report 6788327-X (Version None)
Quarter: 2010Q2

REPORT INFORMATION
  Report Type: 
  Country: None (occurrence: None)
  Receive Date: 20100623
  Receipt Date: 20080304
  Transmission Date: 20101027
  Serious: No
  Sender: FDA-Public Use
  Company Number: US-PFIZER INC-2008008678

PATIENT
  Sex: Female

DRUGS (4)
  1. VIRACEPT [Suspect]
     Route: 048
     Dates: start: 20070620
  2. TRUVADA [Suspect]
     Indication: HIV INFECTION
     Route: 048
     Dates: start: 20070620, end: 20070621
  3. ZANTAC [Concomitant]
     Route: 048
     Dates: start: 20070410
  4. ALBUTEROL [Concomitant]
     Dosage: 6 EVERY 1 DAYS8 DOSAGE FORMS ( 2 DOSAGE FORMS)
     Route: 055
     Dates: start: 20070410

REACTIONS (2)
  - ANAL PRURITUS [None]
  - VULVOVAGINAL PRURITUS [None]
